FAERS Safety Report 20617902 (Version 14)
Quarter: 2025Q3

REPORT INFORMATION
  Report Type: Report from Study
  Country: US (occurrence: US)
  Receive Date: 20220321
  Receipt Date: 20250805
  Transmission Date: 20251021
  Serious: Yes (Life-Threatening, Hospitalization, Other)
  Sender: TAKEDA
  Company Number: US-TAKEDA-2022TUS008231

PATIENT
  Age: 34 Year
  Sex: Male

DRUGS (4)
  1. ADVATE [Suspect]
     Active Substance: ANTIHEMOPHILIC FACTOR, HUMAN RECOMBINANT
     Indication: Factor VIII deficiency
  2. ADVATE [Suspect]
     Active Substance: ANTIHEMOPHILIC FACTOR, HUMAN RECOMBINANT
     Indication: Injury
  3. ADVATE [Suspect]
     Active Substance: ANTIHEMOPHILIC FACTOR, HUMAN RECOMBINANT
  4. HEMLIBRA [Concomitant]
     Active Substance: EMICIZUMAB-KXWH

REACTIONS (23)
  - Haemorrhage [Not Recovered/Not Resolved]
  - Gastric haemorrhage [Unknown]
  - Loss of consciousness [Unknown]
  - Seizure [Unknown]
  - Staphylococcal infection [Unknown]
  - Lower gastrointestinal haemorrhage [Unknown]
  - Haemarthrosis [Recovered/Resolved]
  - Road traffic accident [Unknown]
  - Deep vein thrombosis [Unknown]
  - Sinusitis [Recovered/Resolved]
  - Concussion [Unknown]
  - Joint swelling [Unknown]
  - Gait disturbance [Unknown]
  - Overwork [Unknown]
  - Accident at work [Unknown]
  - Head injury [Unknown]
  - Gait inability [Unknown]
  - Product use issue [Unknown]
  - Arthralgia [Unknown]
  - Limb injury [Unknown]
  - Paraesthesia [Unknown]
  - Feeling abnormal [Unknown]
  - Product prescribing issue [Unknown]

NARRATIVE: CASE EVENT DATE: 20220130
